FAERS Safety Report 7818379-7 (Version None)
Quarter: 2011Q4

REPORT INFORMATION
  Report Type: 
  Country: None (occurrence: None)
  Receive Date: 20111017
  Receipt Date: 20111012
  Transmission Date: 20120403
  Serious: Yes (Other)
  Sender: FDA-Public Use
  Company Number: GB-AMGEN-GBRSP2011051327

PATIENT
  Age: 51 Year
  Sex: Male
  Weight: 90 kg

DRUGS (5)
  1. CORTICOSTEROIDS [Concomitant]
     Indication: IDIOPATHIC THROMBOCYTOPENIC PURPURA
  2. OMEPRAZOLE [Concomitant]
     Indication: PROPHYLAXIS
     Dosage: 20 MG, QD
     Route: 048
     Dates: start: 20110424
  3. NPLATE [Suspect]
     Indication: IDIOPATHIC THROMBOCYTOPENIC PURPURA
     Dosage: 9 MUG/KG, UNK
     Route: 058
     Dates: start: 20110718, end: 20110919
  4. PREDNISONE [Concomitant]
     Indication: IDIOPATHIC THROMBOCYTOPENIC PURPURA
     Dosage: UNK MG, UNK
     Route: 048
     Dates: start: 20110424, end: 20111010
  5. IMMUNOGLOBULINS [Concomitant]
     Indication: IDIOPATHIC THROMBOCYTOPENIC PURPURA

REACTIONS (2)
  - THROMBOCYTOSIS [None]
  - LEUKOCYTOSIS [None]
